FAERS Safety Report 20091718 (Version 1)
Quarter: 2021Q4

REPORT INFORMATION
  Report Type: Spontaneous
  Country: PT (occurrence: PT)
  Receive Date: 20211119
  Receipt Date: 20211119
  Transmission Date: 20220303
  Serious: Yes (Other)
  Sender: FDA-Public Use
  Company Number: PT-NOVARTISPH-NVSC2021PT261865

PATIENT
  Age: 38 Year
  Sex: Female

DRUGS (3)
  1. CALCIUM CARBONATE [Suspect]
     Active Substance: CALCIUM CARBONATE
     Indication: Product used for unknown indication
     Dosage: 1250 MILLIGRAM
     Route: 065
  2. LEVOTHYROXINE [Suspect]
     Active Substance: LEVOTHYROXINE
     Indication: Product used for unknown indication
     Dosage: 0.1 MILLIGRAM
     Route: 065
  3. LEVOTHYROXINE [Suspect]
     Active Substance: LEVOTHYROXINE
     Dosage: 0.15 MILLIGRAM
     Route: 065

REACTIONS (6)
  - Hypokalaemia [Recovering/Resolving]
  - Blood thyroid stimulating hormone increased [Unknown]
  - Hypocalcaemia [Unknown]
  - Paraesthesia [Unknown]
  - Intentional product misuse [Unknown]
  - Constipation [Unknown]
